FAERS Safety Report 7270832-3 (Version None)
Quarter: 2011Q1

REPORT INFORMATION
  Report Type: 
  Country: None (occurrence: None)
  Receive Date: 20110125
  Receipt Date: 20110125
  Transmission Date: 20110831
  Serious: Yes (Other)
  Sender: FDA-Public Use
  Company Number: None

PATIENT
  Sex: Male

DRUGS (1)
  1. HALOPERIDOL [Suspect]
     Dosage: 5MG STAT IM
     Route: 030
     Dates: start: 20101221, end: 20101221

REACTIONS (1)
  - SWOLLEN TONGUE [None]
